FAERS Safety Report 6869586-1 (Version None)
Quarter: 2010Q3

REPORT INFORMATION
  Report Type: 
  Country: None (occurrence: None)
  Receive Date: 20100722
  Receipt Date: 20080805
  Transmission Date: 20110219
  Serious: No
  Sender: FDA-Public Use
  Company Number: US-PFIZER INC-2008066073

PATIENT
  Sex: Female
  Weight: 49.44 kg

DRUGS (3)
  1. CHANTIX [Suspect]
     Indication: SMOKING CESSATION THERAPY
     Dates: start: 20080801
  2. ANTIHYPERTENSIVES [Concomitant]
     Indication: HYPERTENSION
  3. ACETYLSALICYLIC ACID [Concomitant]
     Indication: GASTROINTESTINAL DISORDER

REACTIONS (1)
  - DIZZINESS [None]
